FAERS Safety Report 7740655-7 (Version None)
Quarter: 2011Q3

REPORT INFORMATION
  Report Type: 
  Country: None (occurrence: None)
  Receive Date: 20110909
  Receipt Date: 20110829
  Transmission Date: 20111222
  Serious: Yes (Hospitalization, Disabling)
  Sender: FDA-Public Use
  Company Number: US-MERCK-1104USA01912

PATIENT
  Age: 55 Year
  Sex: Female

DRUGS (6)
  1. COZAAR [Suspect]
     Indication: HYPERTENSION
     Route: 048
     Dates: start: 20110101, end: 20110401
  2. LASIX [Concomitant]
     Route: 065
  3. ALDACTONE [Concomitant]
     Route: 065
  4. INSULIN [Concomitant]
     Route: 065
  5. POTASSIUM (UNSPECIFIED) [Concomitant]
     Route: 065
  6. COZAAR [Suspect]
     Route: 048
     Dates: start: 20110412

REACTIONS (11)
  - PAIN IN EXTREMITY [None]
  - FATIGUE [None]
  - DYSPHONIA [None]
  - WRONG TECHNIQUE IN DRUG USAGE PROCESS [None]
  - VISUAL IMPAIRMENT [None]
  - ABDOMINAL PAIN UPPER [None]
  - OEDEMA [None]
  - LYMPHADENOPATHY [None]
  - OLIGURIA [None]
  - ASCITES [None]
  - WHEELCHAIR USER [None]
